FAERS Safety Report 7151763-6 (Version None)
Quarter: 2010Q4

REPORT INFORMATION
  Report Type: 
  Country: None (occurrence: None)
  Receive Date: 20101124
  Receipt Date: 20101111
  Transmission Date: 20110411
  Serious: Yes (Life-Threatening, Hospitalization)
  Sender: FDA-Public Use
  Company Number: AMAG201000381

PATIENT
  Age: 71 Year
  Sex: Male
  Weight: 64.9 kg

DRUGS (9)
  1. FERAHEME [Suspect]
     Indication: IRON DEFICIENCY ANAEMIA
     Dosage: INTRAVENOUS
     Route: 042
     Dates: start: 20101019, end: 20101019
  2. FERAHEME [Suspect]
     Indication: NEPHROGENIC ANAEMIA
     Dosage: INTRAVENOUS
     Route: 042
     Dates: start: 20101019, end: 20101019
  3. CARVEDILOL [Concomitant]
  4. AMIODARONE (AMIODARONE HYDROCHLORIDE) [Concomitant]
  5. LASIX [Concomitant]
  6. POTASSIUM CHLORIDE [Concomitant]
  7. TAMSULOSIN HCL [Concomitant]
  8. XALATAN (LATANOPROST) EYE DROPS [Concomitant]
  9. COSOPT (DORZOLAMIDE HYDROCHLORIDE, TIMOLOL MALEATE) EYE DROPS [Concomitant]

REACTIONS (15)
  - ANAPHYLACTOID SHOCK [None]
  - ASTHENIA [None]
  - BLOOD CREATININE INCREASED [None]
  - CARDIAC ARREST [None]
  - CARDIAC FAILURE CONGESTIVE [None]
  - DYSPNOEA [None]
  - HYPERGLYCAEMIA [None]
  - HYPERKALAEMIA [None]
  - HYPOKALAEMIA [None]
  - INFUSION RELATED REACTION [None]
  - MALAISE [None]
  - PERICARDIAL EFFUSION [None]
  - PLATELET COUNT DECREASED [None]
  - RENAL FAILURE ACUTE [None]
  - RENAL TUBULAR NECROSIS [None]
